FAERS Safety Report 10006251 (Version 1)
Quarter: 2014Q1

REPORT INFORMATION
  Report Type: Spontaneous
  Country: US (occurrence: US)
  Receive Date: 20140313
  Receipt Date: 20140313
  Transmission Date: 20141002
  Serious: Yes (Hospitalization)
  Sender: FDA-Public Use
  Company Number: US-BAYER-2014-037085

PATIENT
  Age: 20 Year
  Sex: Female
  Weight: 55.96 kg

DRUGS (7)
  1. YAZ [Suspect]
  2. YASMIN [Suspect]
  3. OCELLA [Suspect]
  4. GIANVI [Suspect]
  5. ALBUTEROL [Concomitant]
     Indication: ASTHMA
  6. ZITHROMAX [Concomitant]
  7. ROCEPHIN [Concomitant]

REACTIONS (1)
  - Pulmonary embolism [None]
